FAERS Safety Report 7459110-7 (Version None)
Quarter: 2011Q2

REPORT INFORMATION
  Report Type: 
  Country: None (occurrence: None)
  Receive Date: 20110505
  Receipt Date: 20110428
  Transmission Date: 20111010
  Serious: No
  Sender: FDA-Public Use
  Company Number: US-BIOGENIDEC-2011BI016145

PATIENT
  Age: 48 Year
  Sex: Female

DRUGS (2)
  1. TYSABRI [Suspect]
     Indication: MULTIPLE SCLEROSIS
     Route: 042
     Dates: start: 20100920
  2. TYSABRI [Suspect]
     Route: 042
     Dates: start: 20090623, end: 20100414

REACTIONS (3)
  - NASAL DISCOMFORT [None]
  - DYSPNOEA [None]
  - COUGH [None]
